FAERS Safety Report 5471262-7 (Version None)
Quarter: 2007Q3

REPORT INFORMATION
  Report Type: 
  Country: None (occurrence: None)
  Receive Date: 20070928
  Receipt Date: 20070926
  Transmission Date: 20080115
  Serious: Yes (Hospitalization)
  Sender: FDA-Public Use
  Company Number: FR-BRISTOL-MYERS SQUIBB COMPANY-13887070

PATIENT
  Age: 79 Year
  Sex: Male

DRUGS (8)
  1. METFORMIN HCL [Suspect]
     Indication: DIABETES MELLITUS
     Dosage: 1 DOSAGE FORM = 1000 MG TABLET.
     Route: 048
     Dates: start: 20070619, end: 20070731
  2. LOSARTAN POTASSIUM AND HYDROCHLOROTHIAZIDE [Concomitant]
     Route: 048
  3. DETENSIEL [Concomitant]
     Route: 048
  4. LERCAN [Concomitant]
     Route: 048
  5. KARDEGIC [Concomitant]
     Route: 048
  6. PROSCAR [Concomitant]
     Route: 048
  7. XATRAL [Concomitant]
     Route: 048
  8. NOCTRAN [Concomitant]
     Route: 048

REACTIONS (1)
  - HYPERSENSITIVITY [None]
